FAERS Safety Report 17189756 (Version 1)
Quarter: 2019Q4

REPORT INFORMATION
  Report Type: Spontaneous
  Country: CA (occurrence: CA)
  Receive Date: 20191223
  Receipt Date: 20191223
  Transmission Date: 20200122
  Serious: Yes (Other)
  Sender: FDA-Public Use
  Company Number: CA-ORION CORPORATION ORION PHARMA-TREX2019-5930

PATIENT
  Age: 58 Year
  Sex: Female

DRUGS (5)
  1. ATORVASTATIN [Concomitant]
     Active Substance: ATORVASTATIN
     Route: 065
  2. ENTYVIO [Concomitant]
     Active Substance: VEDOLIZUMAB
     Route: 065
  3. ASA [Concomitant]
     Active Substance: ASPIRIN
     Route: 065
  4. LEUCOVORIN. [Concomitant]
     Active Substance: LEUCOVORIN
     Route: 065
  5. METHOTREXATE (TRADE NAME UNKNOWN) [Suspect]
     Active Substance: METHOTREXATE
     Indication: PRODUCT USED FOR UNKNOWN INDICATION
     Route: 065

REACTIONS (9)
  - Abdominal pain upper [Unknown]
  - Incisional hernia [Unknown]
  - Arthralgia [Unknown]
  - Haemoglobin decreased [Unknown]
  - Fatigue [Unknown]
  - Cholelithiasis [Unknown]
  - Disturbance in attention [Unknown]
  - Alanine aminotransferase increased [Unknown]
  - Blood bilirubin increased [Unknown]
